FAERS Safety Report 4310227-5 (Version None)
Quarter: 2004Q1

REPORT INFORMATION
  Report Type: 
  Country: None (occurrence: None)
  Receive Date: 20040301
  Receipt Date: 20031229
  Transmission Date: 20041129
  Serious: No
  Sender: FDA-Public Use
  Company Number: WAES 0312USA02649

PATIENT
  Age: 68 Year
  Sex: Male

DRUGS (1)
  1. ZETIA [Suspect]
     Dosage: 10 MG/DAILY/PO
     Route: 048

REACTIONS (3)
  - ANGIONEUROTIC OEDEMA [None]
  - EOSINOPHILIA [None]
  - URTICARIA [None]
